FAERS Safety Report 12979432 (Version 1)
Quarter: 2016Q4

REPORT INFORMATION
  Report Type: Report from Study
  Country: CA (occurrence: CA)
  Receive Date: 20161128
  Receipt Date: 20161128
  Transmission Date: 20170207
  Serious: Yes (Other)
  Sender: FDA-Public Use
  Company Number: CA-JNJFOC-20161124802

PATIENT
  Age: 32 Year
  Sex: Female
  Weight: 81 kg

DRUGS (1)
  1. REMICADE [Suspect]
     Active Substance: INFLIXIMAB
     Indication: CROHN^S DISEASE
     Route: 042
     Dates: start: 20140521

REACTIONS (3)
  - Exposure during breast feeding [Unknown]
  - Intestinal stenosis [Recovering/Resolving]
  - Mastitis [Recovered/Resolved]

NARRATIVE: CASE EVENT DATE: 20161102
